FAERS Safety Report 22628799 (Version 1)
Quarter: 2023Q2

REPORT INFORMATION
  Report Type: Spontaneous
  Country: US (occurrence: None)
  Receive Date: 20230619
  Receipt Date: 20230619
  Transmission Date: 20230722
  Serious: No
  Sender: FDA-Public Use
  Company Number: None

PATIENT
  Sex: Female

DRUGS (1)
  1. HUMIRA [Suspect]
     Active Substance: ADALIMUMAB
     Indication: Ankylosing spondylitis
     Dosage: 40 MG EVERY 14 DAYS SUBCUTANEOUS
     Route: 058
     Dates: start: 202304

REACTIONS (3)
  - Drug ineffective [None]
  - Urticaria [None]
  - Rash [None]
